FAERS Safety Report 16188457 (Version 3)
Quarter: 2019Q2

REPORT INFORMATION
  Report Type: Spontaneous
  Country: US (occurrence: US)
  Receive Date: 20190412
  Receipt Date: 20190516
  Transmission Date: 20190711
  Serious: Yes (Other)
  Sender: FDA-Public Use
  Company Number: US-BAUSCH-BL-2019-009768

PATIENT
  Age: 43 Year
  Sex: Male
  Weight: 86.26 kg

DRUGS (1)
  1. LUMIFY [Suspect]
     Active Substance: BRIMONIDINE TARTRATE
     Indication: OCULAR HYPERAEMIA
     Dosage: ONE DROP IN EACH EYE
     Route: 047
     Dates: start: 20190328, end: 20190328

REACTIONS (2)
  - Hyperhidrosis [Not Recovered/Not Resolved]
  - Chemical burns of eye [Recovering/Resolving]

NARRATIVE: CASE EVENT DATE: 20190328
